FAERS Safety Report 8276168-6 (Version None)
Quarter: 2012Q2

REPORT INFORMATION
  Report Type: 
  Country: None (occurrence: None)
  Receive Date: 20120409
  Receipt Date: 20120330
  Transmission Date: 20120825
  Serious: Yes (Hospitalization, Other)
  Sender: FDA-Public Use
  Company Number: 2012SP017519

PATIENT
  Age: 63 Year
  Sex: Male

DRUGS (3)
  1. PEG-INTRON [Suspect]
     Indication: HEPATITIS C
  2. COPEGUS [Suspect]
     Indication: HEPATITIS C
  3. VICTRELIS [Suspect]
     Indication: HEPATITIS C

REACTIONS (2)
  - INFECTION [None]
  - ADVERSE EVENT [None]
